FAERS Safety Report 5529774-3 (Version None)
Quarter: 2007Q4

REPORT INFORMATION
  Report Type: 
  Country: None (occurrence: None)
  Receive Date: 20071129
  Receipt Date: 20070722
  Transmission Date: 20080405
  Serious: No
  Sender: FDA-Public Use
  Company Number: US-ABBOTT-07P-163-0375566-00

PATIENT
  Sex: Female
  Weight: 85.806 kg

DRUGS (6)
  1. MERIDIA [Suspect]
     Indication: WEIGHT CONTROL
     Route: 048
     Dates: start: 20070701
  2. MERIDIA [Suspect]
     Route: 048
     Dates: start: 20070301, end: 20070701
  3. GEMFIBER [Concomitant]
     Indication: BLOOD TRIGLYCERIDES
     Dosage: NOT REPORTED
  4. LEVOTHYROXINE SODIUM [Concomitant]
     Indication: HYPOTHYROIDISM
     Dosage: NOT REPORTED
  5. DESIGIN [Concomitant]
     Indication: CONTRACEPTION
     Dosage: NOT REPORTED
  6. CIRRUS [Concomitant]
     Indication: HYPERSENSITIVITY
     Dosage: NOT REPORTED

REACTIONS (2)
  - APPETITE DISORDER [None]
  - WEIGHT DECREASED [None]
